FAERS Safety Report 4766363-2 (Version None)
Quarter: 2005Q3

REPORT INFORMATION
  Report Type: 
  Country: None (occurrence: None)
  Receive Date: 20050912
  Receipt Date: 20050714
  Transmission Date: 20060218
  Serious: Yes (Other)
  Sender: FDA-Public Use
  Company Number: PHNU2005DE02547

PATIENT
  Sex: Female

DRUGS (7)
  1. CLOZARIL [Suspect]
     Indication: SCHIZOPHRENIA, PARANOID TYPE
     Dosage: 12.5 MG/DAY
     Route: 048
     Dates: start: 20050414, end: 20050630
  2. CLOZARIL [Suspect]
     Dosage: UPTITRATED TO 550 MG/DAY
     Route: 048
     Dates: start: 20050701, end: 20050717
  3. CLOZARIL [Suspect]
     Dosage: 400 MG/DAY
     Route: 048
     Dates: start: 20050718
  4. PANTOZOL [Concomitant]
  5. GASTROZEPIN [Concomitant]
  6. SOLIAN [Concomitant]
     Indication: SCHIZOPHRENIA, PARANOID TYPE
     Dosage: 50 MG/DAY
     Route: 048
     Dates: start: 20050714, end: 20050725
  7. SOLIAN [Concomitant]
     Dosage: UPTITRATED  TO 200MG, BID
     Route: 048
     Dates: start: 20050726

REACTIONS (5)
  - C-REACTIVE PROTEIN INCREASED [None]
  - CHOLELITHIASIS [None]
  - LEUKOCYTOSIS [None]
  - PAROTID GLAND ENLARGEMENT [None]
  - PAROTITIS [None]
